FAERS Safety Report 8836471 (Version 1)
Quarter: 2012Q4

REPORT INFORMATION
  Report Type: 
  Country: US (occurrence: US)
  Receive Date: 20121011
  Receipt Date: 20121011
  Transmission Date: 20130627
  Serious: Yes (Hospitalization, Other)
  Sender: FDA-Public Use
  Company Number: US-ASTRAZENECA-2012SE76248

PATIENT
  Age: 80 Year
  Sex: Female

DRUGS (9)
  1. NEXIUM [Suspect]
     Indication: GASTROOESOPHAGEAL REFLUX DISEASE
     Route: 048
  2. OMEPRAZOLE [Suspect]
     Indication: GASTROOESOPHAGEAL REFLUX DISEASE
     Route: 048
  3. CRESTOR [Suspect]
     Route: 048
  4. CALCIUM [Concomitant]
     Dosage: 600 TD AS DIRECTED
  5. ESTRACE [Concomitant]
     Dosage: 0.1 MG/G - 1 G 3 TIMES A WEEK
     Route: 067
  6. SIMVASTATIN [Concomitant]
     Indication: BLOOD CHOLESTEROL
  7. ALENDRONATE [Concomitant]
  8. DONNATAL [Concomitant]
     Indication: ABDOMINAL PAIN
     Dosage: 0.0194 MG-0.1037 MG-16.2 MG-0.0065 MG/5ML, 5 ML 4 TIMES A DAY PRN
  9. ENABLEX [Concomitant]

REACTIONS (28)
  - Rectal prolapse [Unknown]
  - Hiatus hernia [Unknown]
  - Haemorrhoids [Unknown]
  - Rectocele [Unknown]
  - Urinary tract infection [Unknown]
  - Gastrooesophageal reflux disease [Unknown]
  - Hypertension [Unknown]
  - Oesophageal achalasia [Unknown]
  - Osteoporosis [Unknown]
  - Hyperlipidaemia [Unknown]
  - Lung disorder [Unknown]
  - Vein disorder [Unknown]
  - Osteoarthritis [Unknown]
  - Osteoarthritis [Unknown]
  - Sacroiliitis [Unknown]
  - Hypothyroidism [Unknown]
  - Enthesopathy [Unknown]
  - Anaemia [Unknown]
  - Hypertrophic cardiomyopathy [Unknown]
  - Chronic obstructive pulmonary disease [Unknown]
  - Vitamin B12 deficiency [Unknown]
  - Urinary incontinence [Unknown]
  - Decreased appetite [Unknown]
  - Performance status decreased [Unknown]
  - Carpal tunnel syndrome [Unknown]
  - Faecal incontinence [Unknown]
  - Depression [Unknown]
  - Off label use [Unknown]
